FAERS Safety Report 21172683 (Version 3)
Quarter: 2022Q3

REPORT INFORMATION
  Report Type: Report from Study
  Country: CA (occurrence: CA)
  Receive Date: 20220804
  Receipt Date: 20220901
  Transmission Date: 20221027
  Serious: Yes (Other)
  Sender: FDA-Public Use
  Company Number: CA-BRISTOL-MYERS SQUIBB COMPANY-2022-048451

PATIENT
  Age: 60 Year
  Sex: Male
  Weight: 51.1 kg

DRUGS (8)
  1. OPDIVO [Suspect]
     Active Substance: NIVOLUMAB
     Indication: Gastric cancer
     Route: 042
     Dates: start: 20220503
  2. OPDIVO [Suspect]
     Active Substance: NIVOLUMAB
     Route: 042
     Dates: start: 2022
  3. OPDIVO [Suspect]
     Active Substance: NIVOLUMAB
     Route: 065
  4. OPDIVO [Suspect]
     Active Substance: NIVOLUMAB
     Route: 065
  5. OPDIVO [Suspect]
     Active Substance: NIVOLUMAB
     Route: 065
  6. ENTECAVIR [Concomitant]
     Active Substance: ENTECAVIR
     Indication: Product used for unknown indication
     Route: 065
  7. PANTOPRAZOLE [Concomitant]
     Active Substance: PANTOPRAZOLE
     Indication: Product used for unknown indication
     Route: 065
  8. DEXAMETHASONE [Concomitant]
     Active Substance: DEXAMETHASONE
     Indication: Product used for unknown indication
     Route: 065

REACTIONS (8)
  - Ascites [Recovering/Resolving]
  - Skin discolouration [Unknown]
  - Skin exfoliation [Unknown]
  - General physical condition abnormal [Unknown]
  - Intentional product use issue [Unknown]
  - Asthma [Unknown]
  - Muscle spasms [Recovered/Resolved]
  - Back pain [Recovered/Resolved]

NARRATIVE: CASE EVENT DATE: 20220101
